FAERS Safety Report 8048364-4 (Version None)
Quarter: 2012Q1

REPORT INFORMATION
  Report Type: 
  Country: None (occurrence: None)
  Receive Date: 20120117
  Receipt Date: 20120110
  Transmission Date: 20120608
  Serious: No
  Sender: FDA-Public Use
  Company Number: US-PFIZER INC-2012008486

PATIENT
  Sex: Male

DRUGS (2)
  1. SUTENT [Suspect]
     Dosage: 12.5 MG, 1X/DAY
  2. SUTENT [Suspect]
     Dosage: 25 MG, 1X/DAY

REACTIONS (3)
  - METASTASES TO LUNG [None]
  - DISEASE PROGRESSION [None]
  - SARCOMA [None]
